FAERS Safety Report 10142268 (Version 2)
Quarter: 2016Q3

REPORT INFORMATION
  Report Type: Report from Study
  Country: FR (occurrence: FR)
  Receive Date: 20140430
  Receipt Date: 20160912
  Transmission Date: 20161108
  Serious: Yes (Hospitalization, Other)
  Sender: FDA-Public Use
  Company Number: FR-ROCHE-1389064

PATIENT
  Sex: Male

DRUGS (6)
  1. ETANERCEPT [Concomitant]
     Active Substance: ETANERCEPT
     Dosage: 60 MONTHS
     Route: 065
     Dates: start: 20100603
  2. RITUXIMAB [Suspect]
     Active Substance: RITUXIMAB
     Indication: RHEUMATOID ARTHRITIS
     Dosage: (D1)
     Route: 065
     Dates: start: 20090330, end: 20090526
  3. ROACTEMRA [Concomitant]
     Active Substance: TOCILIZUMAB
     Indication: RHEUMATOID ARTHRITIS
     Route: 065
     Dates: start: 20140911
  4. ORENCIA [Suspect]
     Active Substance: ABATACEPT
     Indication: RHEUMATOID ARTHRITIS
     Route: 058
     Dates: start: 20131014, end: 20140326
  5. LEFLUNOMIDE. [Concomitant]
     Active Substance: LEFLUNOMIDE
     Route: 065
     Dates: end: 20120906
  6. ETANERCEPT [Concomitant]
     Active Substance: ETANERCEPT
     Route: 065
     Dates: start: 20100603

REACTIONS (8)
  - Sleep apnoea syndrome [Not Recovered/Not Resolved]
  - Chronic obstructive pulmonary disease [Not Recovered/Not Resolved]
  - Age-related macular degeneration [Not Recovered/Not Resolved]
  - Arthralgia [Recovered/Resolved]
  - Medical device removal [Recovered/Resolved with Sequelae]
  - Cardiopulmonary failure [Recovered/Resolved]
  - Lupus-like syndrome [Not Recovered/Not Resolved]
  - Liver function test abnormal [Unknown]

NARRATIVE: CASE EVENT DATE: 20090402
